FAERS Safety Report 11828278 (Version 2)
Quarter: 2017Q1

REPORT INFORMATION
  Report Type: Spontaneous
  Country: US (occurrence: US)
  Receive Date: 20151211
  Receipt Date: 20170314
  Transmission Date: 20170428
  Serious: Yes (Other)
  Sender: FDA-Public Use
  Company Number: US-ELI_LILLY_AND_COMPANY-US201512000725

PATIENT
  Sex: Female
  Weight: 96.6 kg

DRUGS (4)
  1. CYMBALTA [Suspect]
     Active Substance: DULOXETINE HYDROCHLORIDE
     Dosage: 60 MG, 6/W
     Route: 048
     Dates: start: 20120719
  2. CYMBALTA [Suspect]
     Active Substance: DULOXETINE HYDROCHLORIDE
     Indication: PAIN
     Dosage: 60 MG, QD
     Route: 048
  3. CYMBALTA [Suspect]
     Active Substance: DULOXETINE HYDROCHLORIDE
     Dosage: 2 DF, WEEKLY (1/W)
     Route: 048
  4. CYMBALTA [Suspect]
     Active Substance: DULOXETINE HYDROCHLORIDE
     Indication: DEPRESSION
     Dosage: 60 MG, QOD
     Route: 048
     Dates: start: 20120625

REACTIONS (18)
  - Affect lability [Unknown]
  - Anxiety [Unknown]
  - Dysphoria [Unknown]
  - Anger [Unknown]
  - Drug withdrawal syndrome [Unknown]
  - Insomnia [Unknown]
  - Vertigo [Unknown]
  - Dizziness [Unknown]
  - Abdominal discomfort [Unknown]
  - Suicidal ideation [Unknown]
  - Abdominal distension [Unknown]
  - Negative thoughts [Unknown]
  - Headache [Unknown]
  - Mood swings [Unknown]
  - Feeling abnormal [Unknown]
  - Nausea [Unknown]
  - Paraesthesia [Unknown]
  - Fatigue [Unknown]
